FAERS Safety Report 6507170-X (Version None)
Quarter: 2009Q4

REPORT INFORMATION
  Report Type: 
  Country: None (occurrence: None)
  Receive Date: 20091221
  Receipt Date: 20091210
  Transmission Date: 20100525
  Serious: Yes (Hospitalization)
  Sender: FDA-Public Use
  Company Number: PHHY2009NL54849

PATIENT
  Sex: Male

DRUGS (6)
  1. ZOMETA [Suspect]
     Dosage: 4MG/5ML, NACL 0.9% 100ML
     Route: 042
     Dates: start: 20090825
  2. ZOMETA [Suspect]
     Dosage: 4MG/5ML, NACL 0.9% 100ML
     Route: 042
     Dates: start: 20090915
  3. ZOMETA [Suspect]
     Dosage: 4MG/5ML, NACL 0.9% 100ML
     Route: 042
     Dates: start: 20091006
  4. ZOMETA [Suspect]
     Dosage: 4MG/5ML, NACL 0.9% 100ML
     Route: 042
     Dates: start: 20091029
  5. ZOMETA [Suspect]
     Dosage: 4MG/5ML, NACL 0.9% 100ML
     Dates: start: 20091117
  6. ZOMETA [Suspect]
     Dosage: 4MG/5ML, NACL 0.9% 100ML
     Route: 042
     Dates: start: 20091210

REACTIONS (2)
  - PNEUMONIA [None]
  - PYREXIA [None]
